FAERS Safety Report 7265149-7 (Version None)
Quarter: 2011Q1

REPORT INFORMATION
  Report Type: 
  Country: None (occurrence: None)
  Receive Date: 20110131
  Receipt Date: 20110127
  Transmission Date: 20110831
  Serious: Yes (Death)
  Sender: FDA-Public Use
  Company Number: PHFR2011GB00702

PATIENT
  Sex: Male

DRUGS (4)
  1. CLOZARIL [Suspect]
     Dosage: 450MG DAILY
     Route: 048
  2. RANITIDINE [Concomitant]
     Dosage: 150MG DAILY
     Route: 048
  3. HYOSCINE HBR HYT [Concomitant]
     Dosage: 300MCG DAILY
     Route: 048
  4. CLOZARIL [Suspect]
     Indication: SCHIZOPHRENIA
     Dosage: UNK
     Route: 048
     Dates: start: 19960130

REACTIONS (1)
  - CARDIAC ARREST [None]
